FAERS Safety Report 14016676 (Version 1)
Quarter: 2017Q3

REPORT INFORMATION
  Report Type: Spontaneous
  Country: US (occurrence: US)
  Receive Date: 20170927
  Receipt Date: 20170927
  Transmission Date: 20171128
  Serious: Yes (Death, Other)
  Sender: FDA-Public Use
  Company Number: US-PFIZER INC-2007033324

PATIENT
  Sex: Female

DRUGS (2)
  1. VIOXX [Suspect]
     Active Substance: ROFECOXIB
     Dosage: UNK
     Route: 048
     Dates: start: 19990101, end: 20011001
  2. CELEBREX [Suspect]
     Active Substance: CELECOXIB
     Dosage: UNK
     Route: 048
     Dates: start: 19990101, end: 20011001

REACTIONS (2)
  - Myocardial infarction [Unknown]
  - Ischaemic stroke [Fatal]

NARRATIVE: CASE EVENT DATE: 200007
